FAERS Safety Report 8850374 (Version 1)
Quarter: 2012Q4

REPORT INFORMATION
  Report Type: 
  Country: GB (occurrence: GB)
  Receive Date: 20121019
  Receipt Date: 20121019
  Transmission Date: 20130627
  Serious: Yes (Other)
  Sender: FDA-Public Use
  Company Number: GB-MYLANLABS-2012S1021162

PATIENT
  Age: 44 Year
  Sex: Female

DRUGS (1)
  1. DICLOFENAC [Suspect]
     Indication: PRODUCT USED FOR UNKNOWN INDICATION

REACTIONS (4)
  - Pruritus [Recovered/Resolved]
  - Lip swelling [Recovered/Resolved]
  - Oedema peripheral [Recovered/Resolved]
  - Urticaria [Recovered/Resolved]
